FAERS Safety Report 12573122 (Version 1)
Quarter: 2016Q3

REPORT INFORMATION
  Report Type: Spontaneous
  Country: US (occurrence: None)
  Receive Date: 20160719
  Receipt Date: 20160719
  Transmission Date: 20161109
  Serious: No
  Sender: FDA-Public Use
  Company Number: None

PATIENT
  Age: 46 Year
  Sex: Female
  Weight: 63.5 kg

DRUGS (4)
  1. FLOVENT [Concomitant]
     Active Substance: FLUTICASONE PROPIONATE
  2. ALBUTEROL. [Concomitant]
     Active Substance: ALBUTEROL
  3. IBUPROFEN. [Concomitant]
     Active Substance: IBUPROFEN
  4. FLUTICASONE PROPIONATE, 50 MCG [Suspect]
     Active Substance: FLUTICASONE PROPIONATE
     Indication: SEASONAL ALLERGY
     Dosage: 1 SPRAY(S) AT BEDTIME ONE SPRAY IN EACH NOSTRIL
     Route: 045
     Dates: start: 20160717, end: 20160718

REACTIONS (3)
  - Anxiety [None]
  - Palpitations [None]
  - Middle insomnia [None]

NARRATIVE: CASE EVENT DATE: 20160718
